FAERS Safety Report 6407727-0 (Version None)
Quarter: 2009Q4

REPORT INFORMATION
  Report Type: 
  Country: None (occurrence: None)
  Receive Date: 20091020
  Receipt Date: 20091013
  Transmission Date: 20100525
  Serious: Yes (Congenital Anomaly, Other)
  Sender: FDA-Public Use
  Company Number: CH-AVENTIS-200916314EU

PATIENT
  Age: 39 Year
  Sex: Female

DRUGS (3)
  1. CLEXANE [Suspect]
     Route: 058
     Dates: start: 20090416, end: 20090512
  2. CLEXANE [Suspect]
     Route: 058
     Dates: start: 20090513, end: 20090525
  3. ASPIRIN [Suspect]
     Dates: start: 20090101

REACTIONS (5)
  - ABORTION INDUCED [None]
  - DRUG EXPOSURE DURING PREGNANCY [None]
  - FOETAL CYSTIC HYGROMA [None]
  - FOETAL GROWTH RETARDATION [None]
  - INTRA-UTERINE DEATH [None]
